FAERS Safety Report 9054887 (Version 1)
Quarter: 2013Q1

REPORT INFORMATION
  Report Type: Report from Study
  Country: US (occurrence: US)
  Receive Date: 20130208
  Receipt Date: 20130208
  Transmission Date: 20140127
  Serious: Yes (Other)
  Sender: FDA-Public Use
  Company Number: US-JNJFOC-20130201829

PATIENT
  Sex: Female

DRUGS (3)
  1. REMICADE [Suspect]
     Indication: CROHN^S DISEASE
     Route: 042
  2. REMICADE [Suspect]
     Indication: CROHN^S DISEASE
     Route: 042
  3. BENADRYL [Concomitant]
     Indication: PREMEDICATION

REACTIONS (5)
  - Abscess [Unknown]
  - Infusion related reaction [Unknown]
  - Heart rate increased [Recovered/Resolved]
  - Erythema [Unknown]
  - Rash [Unknown]
